FAERS Safety Report 4715632-0 (Version None)
Quarter: 2005Q3

REPORT INFORMATION
  Report Type: 
  Country: None (occurrence: None)
  Receive Date: 20050713
  Receipt Date: 20050630
  Transmission Date: 20060218
  Serious: Yes (Hospitalization)
  Sender: FDA-Public Use
  Company Number: 2005096111

PATIENT
  Age: 14 Year
  Sex: Female

DRUGS (2)
  1. CELEBREX [Suspect]
     Indication: ARTHRALGIA
     Dosage: ORAL
     Route: 048
  2. DOXYCYCLINE [Concomitant]

REACTIONS (2)
  - ANTINUCLEAR ANTIBODY POSITIVE [None]
  - GRANULOMATOUS LIVER DISEASE [None]
